FAERS Safety Report 7540415-6 (Version None)
Quarter: 2011Q2

REPORT INFORMATION
  Report Type: 
  Country: None (occurrence: None)
  Receive Date: 20110610
  Receipt Date: 20110531
  Transmission Date: 20111010
  Serious: Yes (Other)
  Sender: FDA-Public Use
  Company Number: BR-ELI_LILLY_AND_COMPANY-BR201106000539

PATIENT
  Age: 64 Year
  Sex: Female

DRUGS (2)
  1. EFFIENT [Suspect]
     Indication: ANTIPLATELET THERAPY
     Dosage: UNK, UNKNOWN
     Route: 048
     Dates: start: 20110501
  2. HEPARINA [Concomitant]
     Dosage: UNK, UNKNOWN
     Route: 042

REACTIONS (2)
  - VASCULAR PSEUDOANEURYSM [None]
  - PUNCTURE SITE HAEMORRHAGE [None]
